FAERS Safety Report 15509967 (Version 2)
Quarter: 2019Q1

REPORT INFORMATION
  Report Type: Spontaneous
  Country: JP (occurrence: JP)
  Receive Date: 20181016
  Receipt Date: 20190208
  Transmission Date: 20190417
  Serious: Yes (Other)
  Sender: FDA-Public Use
  Company Number: JP-PFIZER INC-2018411033

PATIENT
  Age: 60 Year
  Sex: Female

DRUGS (11)
  1. LYRICA [Suspect]
     Active Substance: PREGABALIN
     Indication: BACK PAIN
  2. LYRICA [Suspect]
     Active Substance: PREGABALIN
     Indication: PAIN IN EXTREMITY
  3. HYTHIOL [Concomitant]
     Indication: CHLOASMA
     Dosage: 2 TABLETS, 2X/DAY
     Route: 048
     Dates: start: 2010
  4. BIO-THREE [Concomitant]
     Active Substance: HERBALS
     Indication: DIARRHOEA
     Dosage: 2 TABLETS, 2X/DAY
     Route: 048
     Dates: start: 2015
  5. LOTRIGA [Concomitant]
     Active Substance: OMEGA-3-ACID ETHYL ESTERS
     Indication: FEELING COLD
     Dosage: 1 CAPSULE, 1X/DAY
     Route: 048
     Dates: start: 2015
  6. AMLODIPINE [Concomitant]
     Active Substance: AMLODIPINE BESYLATE
     Indication: HYPERTENSION
     Dosage: 2.5 MG, 1X/DAY
     Route: 048
     Dates: start: 20180512
  7. LYRICA [Suspect]
     Active Substance: PREGABALIN
     Indication: NEURALGIA
     Dosage: 50 MG, 2X/DAY
     Route: 048
     Dates: start: 20180707, end: 20180827
  8. ETIZOLAM [Concomitant]
     Active Substance: ETIZOLAM
     Indication: SLEEP DISORDER
     Dosage: 0.5 MG, 1X/DAY
     Route: 048
     Dates: start: 2015
  9. BELSOMRA [Concomitant]
     Active Substance: SUVOREXANT
     Indication: SLEEP DISORDER
     Dosage: 15 MG, 1X/DAY
     Route: 048
     Dates: start: 2015
  10. ROZEREM [Concomitant]
     Active Substance: RAMELTEON
     Indication: SLEEP DISORDER
     Dosage: 0.5 TABLET, 1X/DAY
     Route: 048
     Dates: start: 2015
  11. BIOFERMIN [Concomitant]
     Active Substance: BACILLUS SUBTILIS\LACTOBACILLUS ACIDOPHILUS\STREPTOCOCCUS FAECAIS
     Dosage: UNK
     Route: 048

REACTIONS (3)
  - Pre-existing condition improved [Unknown]
  - Pneumonia [Recovered/Resolved]
  - Therapeutic response unexpected [Unknown]

NARRATIVE: CASE EVENT DATE: 2018
